FAERS Safety Report 9243049 (Version 1)
Quarter: 2013Q2

REPORT INFORMATION
  Report Type: Spontaneous
  Country: US (occurrence: US)
  Receive Date: 20130419
  Receipt Date: 20130419
  Transmission Date: 20140414
  Serious: Yes (Other)
  Sender: FDA-Public Use
  Company Number: CHPA2012US024341

PATIENT
  Age: 79 Year
  Sex: Male

DRUGS (11)
  1. EXCEDRIN MIGRAINE [Suspect]
     Indication: HEADACHE
     Dosage: 1 DF, PRN
     Route: 048
  2. EXCEDRIN MIGRAINE [Suspect]
     Dosage: 2 TO 6 DF, QD
     Route: 048
     Dates: start: 1998
  3. EXCEDRIN EXTRA STRENGTH [Suspect]
     Indication: HEADACHE
     Dosage: 1 UNK, PRN
     Route: 048
     Dates: start: 1998
  4. EXCEDRIN EXTRA STRENGTH [Suspect]
     Indication: PAIN
  5. NITROGLYCERIN [Concomitant]
     Dosage: 1 DF, QD
     Route: 062
  6. SIMVASTATIN [Concomitant]
     Dosage: 80 MG, QD
     Route: 048
  7. RANITIDINE [Concomitant]
     Indication: GASTRIC DISORDER
     Dosage: 2 UNK, QD
     Route: 048
  8. TERAZOSIN [Concomitant]
     Indication: REPRODUCTIVE TRACT DISORDER
     Dosage: 5 MG, QHS
     Route: 048
  9. TERAZOSIN [Concomitant]
     Indication: URINARY TRACT DISORDER
  10. FOLIC ACID [Concomitant]
     Dosage: 1 MG, QD
     Route: 048
  11. DIAZEPAM [Concomitant]
     Dosage: 2 MG, QD
     Route: 048

REACTIONS (9)
  - Myocardial infarction [Recovered/Resolved]
  - Cardiac failure congestive [Not Recovered/Not Resolved]
  - Myocardial calcification [Not Recovered/Not Resolved]
  - Pain [Recovered/Resolved]
  - Disease recurrence [Recovered/Resolved]
  - Cardiac disorder [Unknown]
  - Haemorrhage [Unknown]
  - Faeces discoloured [Recovered/Resolved]
  - Underdose [Unknown]
